FAERS Safety Report 16922611 (Version 1)
Quarter: 2019Q4

REPORT INFORMATION
  Report Type: Spontaneous
  Country: IT (occurrence: IT)
  Receive Date: 20191016
  Receipt Date: 20191016
  Transmission Date: 20200122
  Serious: Yes (Other)
  Sender: FDA-Public Use
  Company Number: IT-NOVAST LABORATORIES LTD.-2019NOV000293

PATIENT

DRUGS (2)
  1. CYCLOPHOSPHAMIDE. [Suspect]
     Active Substance: CYCLOPHOSPHAMIDE
     Indication: RHABDOMYOSARCOMA
     Dosage: 25 MILLIGRAM/SQ. METER
     Route: 048
  2. VINORELBINE [Suspect]
     Active Substance: VINORELBINE TARTRATE
     Indication: RHABDOMYOSARCOMA
     Dosage: 25 MILLIGRAM/SQ. METER, ON DAYS 1, 8, AND 15
     Route: 042

REACTIONS (2)
  - Pain in extremity [Recovered/Resolved]
  - Gait disturbance [Recovered/Resolved]
